FAERS Safety Report 6577889-3 (Version None)
Quarter: 2010Q1

REPORT INFORMATION
  Report Type: 
  Country: None (occurrence: None)
  Receive Date: 20100211
  Receipt Date: 20100201
  Transmission Date: 20100710
  Serious: Yes (Life-Threatening, Other)
  Sender: FDA-Public Use
  Company Number: JP-PFIZER INC-2010010666

PATIENT
  Age: 70 Year
  Sex: Female
  Weight: 60 kg

DRUGS (6)
  1. NORVASC [Suspect]
     Indication: HYPERTENSION
     Dosage: 5 MG, 1X/DAY
     Route: 048
     Dates: start: 20061130
  2. LAFUTIDINE [Suspect]
     Indication: GASTRITIS
     Dosage: 10 MG, DAILY
     Route: 048
     Dates: start: 20091106
  3. PRAVASTATIN SODIUM [Concomitant]
     Dosage: UNK
     Route: 048
     Dates: start: 20060828
  4. TROXSIN [Concomitant]
     Dosage: UNK
     Route: 048
     Dates: start: 20030625
  5. LOXONIN [Concomitant]
     Dosage: UNK
     Dates: start: 20030625
  6. THYRADIN S [Concomitant]
     Dosage: UNK
     Route: 048
     Dates: start: 20080328

REACTIONS (1)
  - ELECTROCARDIOGRAM QT PROLONGED [None]
